FAERS Safety Report 9138141 (Version 2)
Quarter: 2013Q2

REPORT INFORMATION
  Report Type: Spontaneous
  Country: US (occurrence: US)
  Receive Date: 20130304
  Receipt Date: 20130514
  Transmission Date: 20140414
  Serious: Yes (Death, Other)
  Sender: FDA-Public Use
  Company Number: US-ELI_LILLY_AND_COMPANY-US201301005301

PATIENT
  Sex: Female
  Weight: 46.71 kg

DRUGS (5)
  1. ZYPREXA [Suspect]
     Indication: DEMENTIA
     Dosage: 7.5 MG, PRN
     Route: 048
     Dates: start: 20110114
  2. LEVOTHYROXINE [Concomitant]
     Dosage: .075 DF, UNKNOWN
  3. PAXIL [Concomitant]
     Dosage: 1 DF, UNKNOWN
  4. PROPRANOLOL [Concomitant]
     Dosage: 1 DF, UNKNOWN
  5. BACTRIM [Concomitant]
     Dosage: 1 DF, UNKNOWN

REACTIONS (6)
  - Malignant neoplasm progression [Fatal]
  - Upper limb fracture [Recovered/Resolved]
  - Fall [Unknown]
  - Asthenia [Unknown]
  - Off label use [Unknown]
  - Drug prescribing error [Unknown]
